FAERS Safety Report 11052772 (Version 2)
Quarter: 2015Q2

REPORT INFORMATION
  Report Type: Report from Study
  Country: NL (occurrence: NL)
  Receive Date: 20150421
  Receipt Date: 20150427
  Transmission Date: 20150821
  Serious: Yes (Hospitalization, Other)
  Sender: FDA-Public Use
  Company Number: US-ASTRAZENECA-2015SE20411

PATIENT
  Age: 179 Day
  Sex: Male
  Weight: 6.4 kg

DRUGS (13)
  1. SYNAGIS [Suspect]
     Active Substance: PALIVIZUMAB
     Indication: CARDIAC DISORDER
     Route: 030
     Dates: start: 20141114, end: 20141114
  2. SYNAGIS [Suspect]
     Active Substance: PALIVIZUMAB
     Indication: SHUNT MALFUNCTION
     Route: 030
     Dates: start: 20141010, end: 20141010
  3. SYNAGIS [Suspect]
     Active Substance: PALIVIZUMAB
     Indication: CARDIAC DISORDER
     Route: 030
     Dates: start: 20150206
  4. SOTALOL. [Concomitant]
     Active Substance: SOTALOL
     Indication: ARRHYTHMIA
  5. SYNAGIS [Suspect]
     Active Substance: PALIVIZUMAB
     Indication: CARDIAC DISORDER
     Route: 030
     Dates: start: 20141010, end: 20141010
  6. SYNAGIS [Suspect]
     Active Substance: PALIVIZUMAB
     Indication: SHUNT MALFUNCTION
     Route: 030
     Dates: start: 20150109, end: 20150109
  7. SYNAGIS [Suspect]
     Active Substance: PALIVIZUMAB
     Indication: CARDIAC DISORDER
     Route: 030
     Dates: start: 20141017, end: 20141017
  8. SYNAGIS [Suspect]
     Active Substance: PALIVIZUMAB
     Indication: SHUNT MALFUNCTION
     Route: 030
     Dates: start: 20141114, end: 20141114
  9. SYNAGIS [Suspect]
     Active Substance: PALIVIZUMAB
     Indication: CARDIAC DISORDER
     Route: 030
     Dates: start: 20150109, end: 20150109
  10. SYNAGIS [Suspect]
     Active Substance: PALIVIZUMAB
     Indication: SHUNT MALFUNCTION
     Route: 030
     Dates: start: 20150206
  11. SYNAGIS [Suspect]
     Active Substance: PALIVIZUMAB
     Indication: SHUNT MALFUNCTION
     Route: 030
     Dates: start: 20141017, end: 20141017
  12. SYNAGIS [Suspect]
     Active Substance: PALIVIZUMAB
     Indication: CARDIAC DISORDER
     Route: 030
     Dates: start: 20141212, end: 20141212
  13. SYNAGIS [Suspect]
     Active Substance: PALIVIZUMAB
     Indication: SHUNT MALFUNCTION
     Route: 030
     Dates: start: 20141212, end: 20141212

REACTIONS (2)
  - Pneumonia [Not Recovered/Not Resolved]
  - Bronchiolitis [Recovered/Resolved]

NARRATIVE: CASE EVENT DATE: 20150220
